FAERS Safety Report 9346680 (Version 1)
Quarter: 2013Q2

REPORT INFORMATION
  Report Type: Spontaneous
  Country: US (occurrence: US)
  Receive Date: 20130613
  Receipt Date: 20130613
  Transmission Date: 20140414
  Serious: No
  Sender: FDA-Public Use
  Company Number: US-PFIZER INC-2013174299

PATIENT
  Age: 67 Year
  Sex: Female
  Weight: 62.1 kg

DRUGS (2)
  1. ESTRING [Suspect]
     Indication: VAGINAL DISORDER
     Dosage: UNK
     Route: 067
     Dates: start: 20130502, end: 20130510
  2. CEPHALEXIN [Suspect]
     Indication: URINARY TRACT INFECTION
     Dosage: 250 MG, 1X/DAY

REACTIONS (1)
  - Vulvovaginal mycotic infection [Recovered/Resolved]
